FAERS Safety Report 8396275-7 (Version None)
Quarter: 2012Q2

REPORT INFORMATION
  Report Type: 
  Country: None (occurrence: None)
  Receive Date: 20120530
  Receipt Date: 20120522
  Transmission Date: 20120825
  Serious: Yes (Hospitalization, Other)
  Sender: FDA-Public Use
  Company Number: DE-UCBSA-057874

PATIENT
  Age: 46 Year
  Sex: Male
  Weight: 85 kg

DRUGS (5)
  1. KEPPRA [Suspect]
     Dosage: 250 MG 3 TABLETS, TOTAL AMOUNT: 750 MG
     Route: 048
  2. CIPROFLOXACIN [Suspect]
     Dosage: 500 MG, 3 TABLETS, TOTAL AMOUNT: 1500 MG
     Route: 048
  3. DIPYRONE TAB [Suspect]
     Dosage: TOTAL AMOUNT: 500 MG
     Route: 048
  4. LAMOTRGINE [Suspect]
     Dosage: TOTAL AMOUNT: 600 MG
     Route: 048
  5. PANTOPRAZOLE [Suspect]
     Dosage: 20 MG, 1 TABLET, TOTAL AMOUNT: 20 MG
     Route: 048

REACTIONS (2)
  - DRUG ABUSE [None]
  - CONVULSION [None]
